FAERS Safety Report 6289959-8 (Version None)
Quarter: 2009Q3

REPORT INFORMATION
  Report Type: 
  Country: None (occurrence: None)
  Receive Date: 20090730
  Receipt Date: 20081003
  Transmission Date: 20100115
  Serious: No
  Sender: FDA-Public Use
  Company Number: US-BRISTOL-MYERS SQUIBB COMPANY-14358626

PATIENT
  Sex: Female

DRUGS (1)
  1. COUMADIN [Suspect]
     Dosage: BLISTER PACK HAD 2MG AND 3MG TABLETS.

REACTIONS (2)
  - OEDEMA PERIPHERAL [None]
  - WEIGHT INCREASED [None]
